FAERS Safety Report 8972800 (Version 3)
Quarter: 2013Q1

REPORT INFORMATION
  Report Type: Spontaneous
  Country: US (occurrence: US)
  Receive Date: 20121219
  Receipt Date: 20130212
  Transmission Date: 20140127
  Serious: Yes (Hospitalization)
  Sender: FDA-Public Use
  Company Number: US-009507513-1212USA005919

PATIENT
  Age: 41 None
  Sex: Male
  Weight: 89.8 kg

DRUGS (4)
  1. ASMANEX TWISTHALER [Suspect]
     Dosage: UNK
     Route: 055
     Dates: start: 20121120, end: 20121213
  2. NASONEX [Concomitant]
     Dosage: UNK
     Route: 045
     Dates: end: 20121213
  3. WELLBUTRIN [Concomitant]
  4. VENTOLIN (ALBUTEROL SULFATE) [Concomitant]
     Indication: ASTHMA

REACTIONS (7)
  - Pharyngitis [Recovered/Resolved]
  - Cellulitis [Recovered/Resolved]
  - Product quality issue [Unknown]
  - Ear pain [Unknown]
  - Vertigo [Unknown]
  - Rhinitis allergic [Unknown]
  - Abscess [Recovered/Resolved]
